FAERS Safety Report 15587398 (Version 1)
Quarter: 2018Q4

REPORT INFORMATION
  Report Type: Report from Study
  Country: IT (occurrence: IT)
  Receive Date: 20181105
  Receipt Date: 20181105
  Transmission Date: 20190205
  Serious: Yes (Hospitalization)
  Sender: FDA-Public Use
  Company Number: IT-ROCHE-2207417

PATIENT
  Age: 61 Year
  Sex: Female
  Weight: 65 kg

DRUGS (10)
  1. TORVAST [Concomitant]
     Active Substance: ATORVASTATIN
     Route: 048
     Dates: start: 20181005
  2. IRINOTECAN [Suspect]
     Active Substance: IRINOTECAN
     Indication: COLORECTAL CANCER
     Dosage: DATE OF MOST RECENT DOSE OF IRINOTECAN ADMINSTERED PRIOR TO SERIOUS ADVERSE EVENT: 26/SEP/2018 (277.
     Route: 042
     Dates: start: 20160316
  3. LANSOX [Concomitant]
     Active Substance: LANSOPRAZOLE
     Route: 048
     Dates: start: 20181005
  4. ESAPENT [Concomitant]
     Route: 048
     Dates: start: 20181005
  5. DUOPLAVIN [Concomitant]
     Active Substance: ASPIRIN\CLOPIDOGREL
     Route: 048
     Dates: start: 20181005
  6. BEVACIZUMAB. [Suspect]
     Active Substance: BEVACIZUMAB
     Indication: COLORECTAL CANCER
     Dosage: DATE OF MOST RECENT DOSE OF BEVACIZUAMAB ADMINSTERED PRIOR TO SERIOUS ADVERSE EVENT: 26/SEP/2018 (32
     Route: 042
     Dates: start: 20160316
  7. 5-FU [Suspect]
     Active Substance: FLUOROURACIL
     Indication: COLORECTAL CANCER
     Dosage: DATE OF MOST RECENT DOSE OF FLUOROURACIL ADMINSTERED PRIOR TO SERIOUS ADVERSE EVENT: 26/SEP/2018 (53
     Route: 042
     Dates: start: 20160316
  8. DUOPLAVIN [Concomitant]
     Active Substance: ASPIRIN\CLOPIDOGREL
     Dosage: 75/100 MCG
     Route: 048
     Dates: start: 20181005
  9. BISOPROLOL [Concomitant]
     Active Substance: BISOPROLOL
     Route: 048
     Dates: start: 20181005
  10. OXALIPLATIN. [Suspect]
     Active Substance: OXALIPLATIN
     Indication: COLORECTAL CANCER
     Dosage: DATE OF MOST RECENT DOSE OF OXALIPLATIN ADMINSTERED PRIOR TO SERIOUS ADVERSE EVENT: 26/SEP/2018 (142
     Route: 042
     Dates: start: 20160316

REACTIONS (1)
  - Acute coronary syndrome [Recovered/Resolved]

NARRATIVE: CASE EVENT DATE: 20181005
